FAERS Safety Report 7206669-0 (Version None)
Quarter: 2011Q1

REPORT INFORMATION
  Report Type: 
  Country: None (occurrence: None)
  Receive Date: 20110103
  Receipt Date: 20101222
  Transmission Date: 20110831
  Serious: No
  Sender: FDA-Public Use
  Company Number: US-PFIZER INC-US-WYE-H15388410

PATIENT
  Sex: Female

DRUGS (7)
  1. TYLENOL EXTRA-STRENGTH [Concomitant]
  2. HYDROCHLOROTHIAZIDE [Concomitant]
  3. PRISTIQ [Suspect]
     Indication: ARTHRITIS
     Dosage: 50 MG, 1X/DAY
     Route: 048
     Dates: start: 20100501
  4. ACETYLSALICYLIC ACID [Concomitant]
  5. LOVASTATIN [Concomitant]
  6. CELEBREX [Suspect]
     Indication: ARTHRITIS
     Dosage: 200 MG, 1X/DAY
     Route: 048
     Dates: start: 20040101
  7. LISINOPRIL [Concomitant]

REACTIONS (5)
  - INSOMNIA [None]
  - HYPOACUSIS [None]
  - MYALGIA [None]
  - FALL [None]
  - DYSURIA [None]
